FAERS Safety Report 9157738 (Version 1)
Quarter: 2013Q1

REPORT INFORMATION
  Report Type: Spontaneous
  Country: FR (occurrence: FR)
  Receive Date: 20130312
  Receipt Date: 20130312
  Transmission Date: 20140127
  Serious: Yes (Hospitalization)
  Sender: FDA-Public Use
  Company Number: FR-PFIZER INC-2013072714

PATIENT
  Age: 54 Year
  Sex: Female

DRUGS (22)
  1. TAZOCILLINE [Suspect]
     Indication: INFLAMMATION
     Dosage: 4 G DAILY
     Dates: start: 20121124, end: 20121210
  2. TAZOCILLINE [Suspect]
     Indication: PYREXIA
  3. VANCOMYCIN HCL [Suspect]
     Indication: INFLAMMATION
     Dosage: 1 G DAILY
     Dates: start: 20121121, end: 20121210
  4. VANCOMYCIN HCL [Suspect]
     Indication: PYREXIA
  5. CALCIPARIN [Suspect]
     Indication: ARTERIOVENOUS FISTULA THROMBOSIS
     Dosage: 0.3 ML, 3X/DAY (EVERY 8 HOURS)
     Dates: start: 20121124, end: 20121210
  6. AUGMENTIN [Suspect]
     Indication: INFLAMMATION
     Dosage: 1 G, 1X/DAY
     Dates: start: 20121121, end: 20121210
  7. AUGMENTIN [Suspect]
     Indication: PYREXIA
  8. GENTAMICIN [Suspect]
     Indication: INFLAMMATION
     Dosage: UNK
     Dates: start: 20121123, end: 20121125
  9. GENTAMICIN [Suspect]
     Indication: PYREXIA
  10. AMIKLIN [Suspect]
     Dosage: UNK
     Dates: start: 20121125, end: 20121210
  11. OROCAL [Concomitant]
  12. PREVISCAN [Concomitant]
     Dosage: UNK
     Dates: start: 20121210
  13. CORTANCYL [Concomitant]
     Dosage: 5 MG, UNK
  14. INEXIUM [Concomitant]
     Dosage: 20 MG, UNK
  15. LASILIX [Concomitant]
     Dosage: 120 MG, UNK
  16. MIMPARA [Concomitant]
     Dosage: 60 MG, UNK
  17. UVEDOSE [Concomitant]
  18. ORACILLINE [Concomitant]
  19. PHOSPHOSORB [Concomitant]
  20. PRAVASTATIN [Concomitant]
     Dosage: 20
  21. PROGRAF [Concomitant]
     Dosage: 1.5 MG, 2X/DAY
  22. PROZAC [Concomitant]

REACTIONS (10)
  - Rash maculo-papular [Recovered/Resolved]
  - Pruritus [Recovered/Resolved]
  - Clostridium difficile colitis [Recovered/Resolved]
  - Blister [Recovered/Resolved]
  - Toxic skin eruption [Unknown]
  - Diarrhoea [Unknown]
  - Eczema [Unknown]
  - Skin plaque [Unknown]
  - Skin erosion [Unknown]
  - Dermatitis [Unknown]
